FAERS Safety Report 8166473-6 (Version None)
Quarter: 2012Q1

REPORT INFORMATION
  Report Type: 
  Country: None (occurrence: None)
  Receive Date: 20120227
  Receipt Date: 20110913
  Transmission Date: 20120608
  Serious: No
  Sender: FDA-Public Use
  Company Number: US-MYLANLABS-2011S1018101

PATIENT
  Age: 18 Year
  Sex: Male
  Weight: 63.5 kg

DRUGS (3)
  1. AMNESTEEM [Suspect]
     Indication: ACNE
     Dosage: 40MG BID ON EVEN DAYS
     Route: 048
     Dates: start: 20110609, end: 20110829
  2. AMNESTEEM [Suspect]
     Dosage: 40MG TID ON ODD DAYS
     Route: 048
     Dates: start: 20110609, end: 20110829
  3. PAROXETINE [Concomitant]
     Indication: DEPRESSION

REACTIONS (1)
  - DEPRESSION [None]
